FAERS Safety Report 25283551 (Version 7)
Quarter: 2025Q2

REPORT INFORMATION
  Report Type: Spontaneous
  Country: US (occurrence: US)
  Receive Date: 20250508
  Receipt Date: 20250613
  Transmission Date: 20250716
  Serious: Yes (Hospitalization, Other)
  Sender: GILEAD
  Company Number: US-GILEAD-2025-0712308

PATIENT
  Age: 89 Year
  Sex: Male
  Weight: 65.6 kg

DRUGS (5)
  1. SACITUZUMAB GOVITECAN-HZIY [Suspect]
     Active Substance: SACITUZUMAB GOVITECAN-HZIY
     Indication: Bladder cancer
     Route: 042
     Dates: start: 20250331, end: 20250428
  2. SACITUZUMAB GOVITECAN-HZIY [Suspect]
     Active Substance: SACITUZUMAB GOVITECAN-HZIY
     Route: 042
     Dates: start: 20250520, end: 20250527
  3. RITUXIMAB [Concomitant]
     Active Substance: RITUXIMAB
     Dates: end: 20250530
  4. RITUXIMAB [Concomitant]
     Active Substance: RITUXIMAB
     Route: 065
     Dates: start: 20250605
  5. NEUPOGEN [Concomitant]
     Active Substance: FILGRASTIM
     Indication: Anaemia

REACTIONS (4)
  - Pneumonia klebsiella [Recovered/Resolved]
  - Fatigue [Recovered/Resolved]
  - Chills [Unknown]
  - Flushing [Unknown]

NARRATIVE: CASE EVENT DATE: 20250430
